FAERS Safety Report 23600265 (Version 2)
Quarter: 2024Q1

REPORT INFORMATION
  Report Type: Report from Study
  Country: US (occurrence: US)
  Receive Date: 20240306
  Receipt Date: 20240308
  Transmission Date: 20240410
  Serious: Yes (Hospitalization, Other)
  Sender: FDA-Public Use
  Company Number: US-ABBVIE-5662013

PATIENT
  Age: 81 Year
  Sex: Male
  Weight: 62.142 kg

DRUGS (1)
  1. CREON [Suspect]
     Active Substance: PANCRELIPASE AMYLASE\PANCRELIPASE LIPASE\PANCRELIPASE PROTEASE
     Indication: Pancreatic failure
     Dosage: TIME INTERVAL: 0.16666667 DAYS
     Route: 048
     Dates: start: 202401, end: 20240212

REACTIONS (2)
  - COVID-19 [Recovering/Resolving]
  - Speech disorder [Recovering/Resolving]

NARRATIVE: CASE EVENT DATE: 20240210
